FAERS Safety Report 17860927 (Version 2)
Quarter: 2020Q3

REPORT INFORMATION
  Report Type: Spontaneous
  Country: US (occurrence: US)
  Receive Date: 20200604
  Receipt Date: 20200728
  Transmission Date: 20201103
  Serious: No
  Sender: FDA-Public Use
  Company Number: US-INCYTE CORPORATION-2020IN004730

PATIENT

DRUGS (2)
  1. JAKAFI [Suspect]
     Active Substance: RUXOLITINIB
     Indication: MARROW HYPERPLASIA
     Dosage: 20 MILLIGRAM, BID
     Route: 048
     Dates: start: 201512
  2. JAKAFI [Suspect]
     Active Substance: RUXOLITINIB
     Dosage: 20 MILLIGRAM, BID
     Route: 048
     Dates: start: 20180714

REACTIONS (3)
  - Off label use [Unknown]
  - Fatigue [Unknown]
  - Diarrhoea [Unknown]

NARRATIVE: CASE EVENT DATE: 201512
